FAERS Safety Report 15390462 (Version 2)
Quarter: 2019Q1

REPORT INFORMATION
  Report Type: Spontaneous
  Country: US (occurrence: US)
  Receive Date: 20180917
  Receipt Date: 20190205
  Transmission Date: 20190417
  Serious: Yes (Death)
  Sender: FDA-Public Use
  Company Number: US-MELINTA-US-MLNT-18-00300

PATIENT
  Age: 58 Year
  Sex: Male

DRUGS (4)
  1. CEPHALEXIN. [Concomitant]
     Active Substance: CEPHALEXIN
     Indication: OSTEOMYELITIS
     Dosage: NOT PROVIDED
     Route: 042
     Dates: start: 20180828, end: 20180903
  2. OXYCODONE [Concomitant]
     Active Substance: OXYCODONE
     Indication: PRODUCT USED FOR UNKNOWN INDICATION
     Dosage: NOT PROVIDED.
  3. ORBACTIV [Suspect]
     Active Substance: ORITAVANCIN
     Indication: OSTEOMYELITIS
     Dosage: NOT PROVIDED
     Route: 041
     Dates: start: 20180903, end: 20180903
  4. METHADONE [Concomitant]
     Active Substance: METHADONE HYDROCHLORIDE
     Indication: DRUG DEPENDENCE
     Dosage: NOT PROVIDED.

REACTIONS (2)
  - Sudden death [Fatal]
  - Off label use [Fatal]

NARRATIVE: CASE EVENT DATE: 20180903
